FAERS Safety Report 19651840 (Version 3)
Quarter: 2023Q1

REPORT INFORMATION
  Report Type: Spontaneous
  Country: US (occurrence: US)
  Receive Date: 20210803
  Receipt Date: 20230215
  Transmission Date: 20230418
  Serious: Yes (Hospitalization)
  Sender: FDA-Public Use
  Company Number: US-AMNEAL PHARMACEUTICALS-2021-AMRX-03023

PATIENT
  Sex: Male
  Weight: 9.297 kg

DRUGS (3)
  1. VIGABATRIN [Suspect]
     Active Substance: VIGABATRIN
     Indication: Febrile convulsion
     Dosage: 500 MILLIGRAM, 2 /DAY
     Route: 048
  2. VIGABATRIN [Suspect]
     Active Substance: VIGABATRIN
     Dosage: 675 MILLIGRAM, 2 /DAY (MIXED 2 PACKETS IN 20ML OF WATER)
     Route: 048
  3. VIGABATRIN [Suspect]
     Active Substance: VIGABATRIN
     Dosage: 13.75 ML, TWICE DAILY
     Route: 048

REACTIONS (2)
  - Adverse event [Unknown]
  - Product use issue [Unknown]
